FAERS Safety Report 5266464-9 (Version None)
Quarter: 2007Q1

REPORT INFORMATION
  Report Type: 
  Country: None (occurrence: None)
  Receive Date: 20070315
  Receipt Date: 20070313
  Transmission Date: 20070707
  Serious: Yes (Other)
  Sender: FDA-Public Use
  Company Number: JP-ALLERGAN-0609184US

PATIENT
  Sex: Female

DRUGS (1)
  1. GATIFLOXACIN [Suspect]
     Indication: KERATITIS
     Dosage: UNK, TID
     Route: 047
     Dates: start: 20060202, end: 20060306

REACTIONS (3)
  - ABNORMAL LABOUR [None]
  - CEPHALO-PELVIC DISPROPORTION [None]
  - PREGNANCY [None]
